FAERS Safety Report 13357298 (Version 4)
Quarter: 2017Q2

REPORT INFORMATION
  Report Type: Report from Study
  Country: None (occurrence: US)
  Receive Date: 20170322
  Receipt Date: 20170531
  Transmission Date: 20170830
  Serious: Yes (Hospitalization, Other)
  Sender: FDA-Public Use
  Company Number: US-ABBVIE-17K-163-1912116-00

PATIENT
  Sex: Female

DRUGS (1)
  1. HUMIRA [Suspect]
     Active Substance: ADALIMUMAB
     Indication: CROHN^S DISEASE
     Route: 058

REACTIONS (6)
  - Upper limb fracture [Unknown]
  - Abdominal pain upper [Unknown]
  - Loss of consciousness [Unknown]
  - Fall [Unknown]
  - Loss of consciousness [Unknown]
  - Clostridium difficile infection [Not Recovered/Not Resolved]

NARRATIVE: CASE EVENT DATE: 2017
